FAERS Safety Report 11239776 (Version 1)
Quarter: 2015Q3

REPORT INFORMATION
  Report Type: Spontaneous
  Country: US (occurrence: None)
  Receive Date: 20150701
  Receipt Date: 20150701
  Transmission Date: 20151125
  Serious: Yes (Other)
  Sender: FDA-Public Use
  Company Number: None

PATIENT
  Age: 50 Year
  Sex: Female
  Weight: 74.39 kg

DRUGS (5)
  1. LEVOFLOXACIN 500MG [Suspect]
     Active Substance: LEVOFLOXACIN
     Indication: SINUSITIS
     Dosage: 1 PILL
     Route: 048
     Dates: start: 20150123, end: 20150201
  2. LEVOFLOXACIN 500MG [Suspect]
     Active Substance: LEVOFLOXACIN
     Indication: BRONCHITIS
     Dosage: 1 PILL
     Route: 048
     Dates: start: 20150123, end: 20150201
  3. BLACK COHOSH SUPPLEMENT [Concomitant]
  4. INHALER SYMBICORT [Concomitant]
  5. MULTI VITAMIN [Concomitant]
     Active Substance: VITAMINS

REACTIONS (6)
  - Joint swelling [None]
  - Tendonitis [None]
  - Peripheral swelling [None]
  - Neuropathy peripheral [None]
  - Burning sensation [None]
  - Inflammation [None]

NARRATIVE: CASE EVENT DATE: 20150123
